FAERS Safety Report 7957408-7 (Version None)
Quarter: 2011Q4

REPORT INFORMATION
  Report Type: 
  Country: None (occurrence: None)
  Receive Date: 20111205
  Receipt Date: 20111201
  Transmission Date: 20120403
  Serious: Yes (Hospitalization, Other)
  Sender: FDA-Public Use
  Company Number: US-MERCK-1104USA02076

PATIENT
  Age: 50 Year
  Sex: Female
  Weight: 83 kg

DRUGS (12)
  1. FOSAMAX [Suspect]
     Route: 048
     Dates: start: 20001127
  2. FOSAMAX [Suspect]
     Route: 048
     Dates: start: 20020101, end: 20091101
  3. FOSAMAX [Suspect]
     Indication: OSTEOPOROSIS PROPHYLAXIS
     Route: 048
     Dates: start: 19970501, end: 20090101
  4. CALCIUM (UNSPECIFIED) [Concomitant]
     Route: 048
  5. VITAMINS (UNSPECIFIED) [Concomitant]
     Route: 048
  6. PREDNISONE TAB [Suspect]
     Indication: PSORIASIS
     Route: 048
  7. FOSAMAX [Suspect]
     Route: 048
     Dates: start: 20020101, end: 20091101
  8. FOSAMAX [Suspect]
     Route: 048
     Dates: start: 20001127
  9. VITAMIN E [Concomitant]
     Route: 048
  10. FOSAMAX [Suspect]
     Indication: OSTEOPOROSIS
     Route: 048
     Dates: start: 19970501, end: 20090101
  11. VITAMIN D (UNSPECIFIED) [Concomitant]
     Route: 048
  12. ALENDRONATE SODIUM [Suspect]
     Indication: OSTEOPOROSIS
     Route: 048
     Dates: start: 20080902

REACTIONS (93)
  - PYREXIA [None]
  - HAEMANGIOMA [None]
  - COLONIC POLYP [None]
  - CHOLELITHIASIS [None]
  - IRON DEFICIENCY ANAEMIA [None]
  - HYPERTENSION [None]
  - MUSCULOSKELETAL CHEST PAIN [None]
  - UPPER RESPIRATORY TRACT INFECTION [None]
  - TOOTH DISORDER [None]
  - PAPULE [None]
  - BALANCE DISORDER [None]
  - ARTHRITIS [None]
  - FEMUR FRACTURE [None]
  - FALL [None]
  - OSTEOARTHRITIS [None]
  - CATARACT [None]
  - EXOSTOSIS [None]
  - EUSTACHIAN TUBE DYSFUNCTION [None]
  - ARTHRALGIA [None]
  - PRURITUS [None]
  - CATARACT SUBCAPSULAR [None]
  - URGE INCONTINENCE [None]
  - LUNG NEOPLASM [None]
  - ECCHYMOSIS [None]
  - DIVERTICULUM [None]
  - INTERVERTEBRAL DISC DEGENERATION [None]
  - ASTHMA [None]
  - ATELECTASIS [None]
  - CARDIOMEGALY [None]
  - RIB FRACTURE [None]
  - VITAMIN D DEFICIENCY [None]
  - BURSITIS [None]
  - PNEUMONIA [None]
  - HYPOAESTHESIA [None]
  - HYPERCHOLESTEROLAEMIA [None]
  - HAEMORRHOIDS [None]
  - DYSHIDROSIS [None]
  - DEPRESSION [None]
  - INTESTINAL PERFORATION [None]
  - DYSPNOEA [None]
  - ABDOMINAL PAIN [None]
  - INCREASED TENDENCY TO BRUISE [None]
  - PULMONARY FIBROSIS [None]
  - SKIN MASS [None]
  - PALPITATIONS [None]
  - HYPERLIPIDAEMIA [None]
  - BODY HEIGHT DECREASED [None]
  - JOINT SWELLING [None]
  - BLOOD POTASSIUM DECREASED [None]
  - HAEMORRHAGE [None]
  - SPINAL OSTEOARTHRITIS [None]
  - INSOMNIA [None]
  - VENTRICULAR EXTRASYSTOLES [None]
  - TENDONITIS [None]
  - DERMAL CYST [None]
  - ORAL DISCOMFORT [None]
  - OBSESSIVE THOUGHTS [None]
  - NOCTURIA [None]
  - MUSCLE STRAIN [None]
  - LUNG DISORDER [None]
  - LIVER DISORDER [None]
  - DYSPEPSIA [None]
  - THORACIC VERTEBRAL FRACTURE [None]
  - HAEMANGIOMA OF LIVER [None]
  - GINGIVAL DISORDER [None]
  - LICHEN MYXOEDEMATOSUS [None]
  - IMPAIRED HEALING [None]
  - WOUND INFECTION STAPHYLOCOCCAL [None]
  - OEDEMA PERIPHERAL [None]
  - PAIN IN EXTREMITY [None]
  - ALOPECIA [None]
  - HAEMATURIA [None]
  - CALCIUM DEFICIENCY [None]
  - DIVERTICULAR PERFORATION [None]
  - ADVERSE DRUG REACTION [None]
  - ANGIOKERATOMA [None]
  - CELLULITIS [None]
  - GROIN PAIN [None]
  - FOOT FRACTURE [None]
  - ANAEMIA [None]
  - RENAL CYST [None]
  - AMNESIA [None]
  - MUSCULOSKELETAL DISCOMFORT [None]
  - BASAL CELL CARCINOMA [None]
  - HYPONATRAEMIA [None]
  - CHEST PAIN [None]
  - FIBROMYALGIA [None]
  - INCISIONAL DRAINAGE [None]
  - RASH [None]
  - URINARY INCONTINENCE [None]
  - SUPRAVENTRICULAR TACHYCARDIA [None]
  - HAIR FOLLICLE TUMOUR BENIGN [None]
  - HEADACHE [None]
